FAERS Safety Report 5368048-0 (Version None)
Quarter: 2007Q2

REPORT INFORMATION
  Report Type: 
  Country: None (occurrence: None)
  Receive Date: 20070622
  Receipt Date: 20070607
  Transmission Date: 20071010
  Serious: Yes (Hospitalization)
  Sender: FDA-Public Use
  Company Number: CH-GENENTECH-241482

PATIENT
  Sex: Male
  Weight: 67 kg

DRUGS (11)
  1. BEVACIZUMAB [Suspect]
     Indication: COLON CANCER
     Dosage: 330 MG, Q2W
     Route: 042
     Dates: start: 20070227, end: 20070502
  2. OXALIPLATIN [Suspect]
     Indication: COLON CANCER
     Dosage: 150 MG, Q2W
     Route: 042
     Dates: start: 20070227
  3. FLUOROURACIL [Concomitant]
     Indication: COLON CANCER
  4. FOLINIC ACID [Concomitant]
     Indication: COLON CANCER
  5. DIOVAN [Concomitant]
     Indication: HYPERTENSION
     Dosage: 80 MG, QD
     Dates: start: 20070327
  6. DIOVAN [Concomitant]
     Dosage: 160 MG, QD
     Dates: end: 20070422
  7. ADALAT - SLOW RELEASE [Concomitant]
     Indication: HYPERTENSION
     Dosage: 30 MG, QD
     Dates: start: 20070404, end: 20070422
  8. METOCLOPRAMIDE [Concomitant]
     Indication: DRUG USE FOR UNKNOWN INDICATION
     Dates: start: 20070227
  9. NEXIUM [Concomitant]
     Indication: DRUG USE FOR UNKNOWN INDICATION
     Dates: start: 20070417
  10. NITROGLYCERIN [Concomitant]
     Indication: HYPERTENSION
  11. NITRODERM [Concomitant]
     Indication: DRUG USE FOR UNKNOWN INDICATION

REACTIONS (2)
  - ANAPHYLACTIC REACTION [None]
  - HYPOTENSION [None]
